FAERS Safety Report 24155124 (Version 1)
Quarter: 2024Q3

REPORT INFORMATION
  Report Type: Spontaneous
  Country: GB (occurrence: None)
  Receive Date: 20240731
  Receipt Date: 20240731
  Transmission Date: 20241017
  Serious: Yes (Other)
  Sender: ASTRAZENECA
  Company Number: 2024A167525

PATIENT
  Age: 65 Year
  Sex: Female
  Weight: 77 kg

DRUGS (7)
  1. SYMBICORT [Suspect]
     Active Substance: BUDESONIDE\FORMOTEROL FUMARATE DIHYDRATE
     Indication: Hidradenitis
     Dosage: 206 UG 200MCG/6MCG UNKNOWN
     Route: 055
  2. SOPROBEC [Concomitant]
     Route: 055
     Dates: start: 20240223
  3. COCODAMOL [Concomitant]
     Active Substance: ACETAMINOPHEN\CODEINE PHOSPHATE
     Dosage: 8MG/500MG ONE TO TWO508.0MG UNKNOWN
     Route: 048
  4. COCODAMOL [Concomitant]
     Active Substance: ACETAMINOPHEN\CODEINE PHOSPHATE
     Dosage: 15MG/500MG TAKE ONE EVERY515.0MG UNKNOWN
     Route: 048
     Dates: start: 20240410
  5. COCODAMOL [Concomitant]
     Active Substance: ACETAMINOPHEN\CODEINE PHOSPHATE
     Dosage: 30MG/500MG ONE TO TWO TABLETS UP TO530.0MG UNKNOWN
     Route: 048
     Dates: start: 20240219
  6. AMLODIPINE [Concomitant]
     Active Substance: AMLODIPINE BESYLATE
     Route: 048
     Dates: start: 20240219, end: 20240425
  7. IBUPROFEN [Concomitant]
     Active Substance: IBUPROFEN
     Route: 061
     Dates: start: 20240219

REACTIONS (1)
  - Arthralgia [Recovering/Resolving]

NARRATIVE: CASE EVENT DATE: 20240305
